FAERS Safety Report 5242700-X (Version None)
Quarter: 2007Q1

REPORT INFORMATION
  Report Type: 
  Country: None (occurrence: None)
  Receive Date: 20070221
  Receipt Date: 20070220
  Transmission Date: 20070707
  Serious: Yes (Disabling, Other)
  Sender: FDA-Public Use
  Company Number: US-GLAXOSMITHKLINE-A0629688A

PATIENT
  Age: 72 Year
  Sex: Male
  Weight: 87.7 kg

DRUGS (3)
  1. MALARONE [Suspect]
     Indication: PROPHYLAXIS
     Dosage: 1TAB PER DAY
     Route: 048
     Dates: start: 20060908, end: 20060929
  2. TYLENOL [Concomitant]
  3. IMODIUM [Concomitant]

REACTIONS (6)
  - ANOREXIA [None]
  - COELIAC DISEASE [None]
  - DIARRHOEA [None]
  - NAUSEA [None]
  - VOMITING [None]
  - WEIGHT DECREASED [None]
